FAERS Safety Report 8571862-1 (Version None)
Quarter: 2012Q3

REPORT INFORMATION
  Report Type: 
  Country: None (occurrence: None)
  Receive Date: 20120806
  Receipt Date: 20120724
  Transmission Date: 20120928
  Serious: Yes (Other)
  Sender: FDA-Public Use
  Company Number: AU-JNJFOC-20120713221

PATIENT
  Age: 7 Decade
  Sex: Female

DRUGS (1)
  1. RISPERDAL CONSTA [Suspect]
     Indication: ACCIDENTAL EXPOSURE
     Route: 030

REACTIONS (3)
  - INJURY ASSOCIATED WITH DEVICE [None]
  - EXPOSURE TO CONTAMINATED DEVICE [None]
  - NEEDLE ISSUE [None]
